FAERS Safety Report 25808748 (Version 1)
Quarter: 2025Q3

REPORT INFORMATION
  Report Type: Report from Study
  Country: GB (occurrence: GB)
  Receive Date: 20250916
  Receipt Date: 20250916
  Transmission Date: 20251021
  Serious: Yes (Other)
  Sender: ABBVIE
  Company Number: GB-ABBVIE-6461008

PATIENT
  Sex: Male

DRUGS (1)
  1. SKYRIZI [Suspect]
     Active Substance: RISANKIZUMAB-RZAA
     Indication: Psoriasis
     Dosage: SKYRIZI 150MG/1.0ML?FOA- SOLUTION FOR INJECTION IN PRE-FILLED PEN
     Route: 058

REACTIONS (2)
  - Stent placement [Unknown]
  - Pain in extremity [Not Recovered/Not Resolved]
